FAERS Safety Report 12954797 (Version 1)
Quarter: 2016Q4

REPORT INFORMATION
  Report Type: Spontaneous
  Country: US (occurrence: US)
  Receive Date: 20161117
  Receipt Date: 20161117
  Transmission Date: 20170207
  Serious: Yes (Other)
  Sender: FDA-Public Use
  Company Number: None

PATIENT
  Age: 38 Year
  Sex: Male
  Weight: 95.85 kg

DRUGS (15)
  1. LATUDA [Suspect]
     Active Substance: LURASIDONE HYDROCHLORIDE
     Indication: BIPOLAR DISORDER
     Dosage: ?          QUANTITY:30 TABLET(S);?
     Route: 048
     Dates: start: 20150302, end: 20160414
  2. MAGNESIUM [Concomitant]
     Active Substance: MAGNESIUM
  3. VITAMIN E [Concomitant]
     Active Substance: .ALPHA.-TOCOPHEROL
  4. RELPAX [Concomitant]
     Active Substance: ELETRIPTAN HYDROBROMIDE
  5. AMBIEN [Concomitant]
     Active Substance: ZOLPIDEM TARTRATE
  6. FIORICET WITH CODEINE [Concomitant]
     Active Substance: ACETAMINOPHEN\BUTALBITAL\CAFFEINE\CODEINE PHOSPHATE
  7. XENAZINE [Concomitant]
     Active Substance: TETRABENAZINE
  8. CYCLOBENZAPRINE [Concomitant]
     Active Substance: CYCLOBENZAPRINE
  9. GINKGO BILOBA [Concomitant]
     Active Substance: GINKGO
  10. TAMSULOSIN [Concomitant]
     Active Substance: TAMSULOSIN
  11. IBUPROFEN. [Concomitant]
     Active Substance: IBUPROFEN
  12. HYDROCODONE [Concomitant]
     Active Substance: HYDROCODONE
  13. CLONAZEPAM. [Concomitant]
     Active Substance: CLONAZEPAM
  14. VITAMIN B6 [Concomitant]
     Active Substance: PYRIDOXINE HYDROCHLORIDE
  15. BENZTROPINE [Concomitant]
     Active Substance: BENZTROPINE

REACTIONS (2)
  - Tardive dyskinesia [None]
  - Tic [None]

NARRATIVE: CASE EVENT DATE: 20151101
